FAERS Safety Report 7025302-4 (Version None)
Quarter: 2010Q4

REPORT INFORMATION
  Report Type: 
  Country: None (occurrence: None)
  Receive Date: 20101001
  Receipt Date: 20100921
  Transmission Date: 20110411
  Serious: Yes (Life-Threatening, Hospitalization)
  Sender: FDA-Public Use
  Company Number: BR-GENENTECH-307073

PATIENT
  Sex: Female

DRUGS (2)
  1. RITUXIMAB [Suspect]
     Indication: RHEUMATOID ARTHRITIS
     Dosage: 1000 MG, UNKNOWN
     Route: 042
     Dates: start: 20100416
  2. RITUXIMAB [Suspect]
     Dosage: 1000 MG, UNKNOWN
     Route: 042
     Dates: start: 20100429

REACTIONS (2)
  - EPISTAXIS [None]
  - THROMBOCYTOPENIA [None]
